FAERS Safety Report 15504895 (Version 16)
Quarter: 2021Q2

REPORT INFORMATION
  Report Type: Spontaneous
  Country: US (occurrence: US)
  Receive Date: 20181016
  Receipt Date: 20210607
  Transmission Date: 20210716
  Serious: Yes (Other)
  Sender: FDA-Public Use
  Company Number: US-SA-2018SA282953

PATIENT
  Age: 56 Year
  Sex: Female

DRUGS (4)
  1. AUBAGIO [Suspect]
     Active Substance: TERIFLUNOMIDE
     Indication: MULTIPLE SCLEROSIS
     Dosage: 7 MG, QD
     Route: 048
     Dates: start: 20180824, end: 2018
  2. AUBAGIO [Suspect]
     Active Substance: TERIFLUNOMIDE
     Dosage: 7 MG, QD
     Route: 048
     Dates: start: 2019
  3. AUBAGIO [Suspect]
     Active Substance: TERIFLUNOMIDE
     Dosage: 7 MG, QD
     Route: 048
     Dates: start: 20190117
  4. AUBAGIO [Suspect]
     Active Substance: TERIFLUNOMIDE
     Dosage: 7 MG, QOD
     Route: 048
     Dates: start: 2018

REACTIONS (21)
  - Balance disorder [Unknown]
  - Clavicle fracture [Recovered/Resolved]
  - Muscle spasms [Unknown]
  - Fall [Not Recovered/Not Resolved]
  - Product use issue [Unknown]
  - Adverse drug reaction [Unknown]
  - Pneumonia [Recovered/Resolved]
  - Multiple sclerosis relapse [Unknown]
  - Heat exhaustion [Unknown]
  - Diarrhoea [Recovered/Resolved]
  - Loss of consciousness [Unknown]
  - Pruritus [Unknown]
  - Pain in extremity [Recovered/Resolved]
  - Pain [Not Recovered/Not Resolved]
  - Diarrhoea [Not Recovered/Not Resolved]
  - Muscular weakness [Unknown]
  - Fatigue [Unknown]
  - Movement disorder [Not Recovered/Not Resolved]
  - Gait disturbance [Unknown]
  - Alopecia [Unknown]
  - Product dose omission issue [Unknown]

NARRATIVE: CASE EVENT DATE: 2018
